FAERS Safety Report 5478443-7 (Version None)
Quarter: 2007Q4

REPORT INFORMATION
  Report Type: 
  Country: None (occurrence: None)
  Receive Date: 20071005
  Receipt Date: 20070926
  Transmission Date: 20080405
  Serious: Yes (Other)
  Sender: FDA-Public Use
  Company Number: US-BAYER-200713398BWH

PATIENT
  Age: 60 Year
  Sex: Male

DRUGS (4)
  1. TRASYLOL [Suspect]
     Indication: VENTRICULAR ASSIST DEVICE INSERTION
     Dosage: UNIT DOSE: 10000 KIU
     Route: 042
     Dates: start: 20070801, end: 20070801
  2. TRASYLOL [Suspect]
     Route: 042
     Dates: start: 20070801, end: 20070801
  3. TRASYLOL [Suspect]
     Dosage: UNIT DOSE: 10000 KIU
     Route: 042
     Dates: start: 20070925, end: 20070925
  4. TRASYLOL [Suspect]
     Dosage: UNIT DOSE: 500000 KIU
     Route: 042
     Dates: start: 20070925, end: 20070925

REACTIONS (1)
  - HYPOTENSION [None]
